FAERS Safety Report 7903736-0 (Version None)
Quarter: 2011Q4

REPORT INFORMATION
  Report Type: 
  Country: None (occurrence: None)
  Receive Date: 20111109
  Receipt Date: 20111025
  Transmission Date: 20120403
  Serious: Yes (Other)
  Sender: FDA-Public Use
  Company Number: PHHY2011GB94867

PATIENT

DRUGS (2)
  1. DOCETAXEL [Suspect]
     Indication: PROSTATE CANCER METASTATIC
     Dosage: 75 MG/M2, UNK
  2. PREDNISOLONE [Concomitant]
     Indication: PROSTATE CANCER METASTATIC
     Dosage: UNK UKN, UNK

REACTIONS (7)
  - TOXICITY TO VARIOUS AGENTS [None]
  - VISION BLURRED [None]
  - DIPLOPIA [None]
  - CONFUSIONAL STATE [None]
  - DIZZINESS [None]
  - BALANCE DISORDER [None]
  - SOMNOLENCE [None]
